FAERS Safety Report 5152737-7 (Version None)
Quarter: 2006Q4

REPORT INFORMATION
  Report Type: 
  Country: None (occurrence: None)
  Receive Date: 20061116
  Receipt Date: 20061108
  Transmission Date: 20070319
  Serious: Yes (Disabling, Other)
  Sender: FDA-Public Use
  Company Number: US-ABBOTT-06P-163-0349824-00

PATIENT
  Sex: Female
  Weight: 68.1 kg

DRUGS (8)
  1. HUMIRA [Suspect]
     Indication: RHEUMATOID ARTHRITIS
     Route: 058
     Dates: start: 20050301
  2. CO-DIOVAN [Concomitant]
     Indication: BLOOD PRESSURE
     Route: 048
  3. FISH OIL [Concomitant]
     Indication: DRUG USE FOR UNKNOWN INDICATION
     Route: 048
  4. ACUFLEX [Concomitant]
     Indication: DRUG USE FOR UNKNOWN INDICATION
  5. MELOXICAM [Concomitant]
     Indication: PAIN
     Route: 048
  6. CITRACAL + D [Concomitant]
     Indication: MINERAL SUPPLEMENTATION
     Route: 048
  7. VITAMIN CAP [Concomitant]
     Indication: VITAMIN SUPPLEMENTATION
     Route: 048
  8. OSTEO BI-FLEX [Concomitant]
     Indication: ARTHRITIS
     Route: 048

REACTIONS (6)
  - BLINDNESS [None]
  - DRY EYE [None]
  - RETINAL DETACHMENT [None]
  - RETINAL DISORDER [None]
  - UNEVALUABLE EVENT [None]
  - VISION BLURRED [None]
